FAERS Safety Report 8621832-X (Version None)
Quarter: 2012Q3

REPORT INFORMATION
  Report Type: 
  Country: None (occurrence: None)
  Receive Date: 20120822
  Receipt Date: 20120822
  Transmission Date: 20120928
  Serious: No
  Sender: FDA-Public Use
  Company Number: None

PATIENT
  Age: 16 Year
  Sex: Male

DRUGS (3)
  1. BENADRYL [Suspect]
     Indication: URTICARIA
     Dosage: 50 MG, PO TID
     Route: 048
     Dates: start: 20110919, end: 20110923
  2. BUPRION SR 100 MG [Suspect]
     Dosage: 1 TAB DAILY FOR 3 DAYS THEN 1 TAB TWICE DAILY
     Route: 048
     Dates: start: 20110825, end: 20110921
  3. METHYLPREDNISOLONE [Suspect]
     Indication: URTICARIA
     Dosage: 4 MG, PO TID
     Route: 048
     Dates: start: 20110922, end: 20110928

REACTIONS (3)
  - RASH GENERALISED [None]
  - RASH PRURITIC [None]
  - URTICARIA [None]
